FAERS Safety Report 6503060-7 (Version None)
Quarter: 2009Q4

REPORT INFORMATION
  Report Type: 
  Country: None (occurrence: None)
  Receive Date: 20091217
  Receipt Date: 20091204
  Transmission Date: 20100525
  Serious: Yes (Hospitalization)
  Sender: FDA-Public Use
  Company Number: US-JNJCH-2009032300

PATIENT
  Sex: Male

DRUGS (12)
  1. ASPIRIN [Suspect]
     Indication: ACUTE CORONARY SYNDROME
     Dosage: TEXT:81MG
     Route: 048
  2. PLACEBO [Suspect]
     Indication: ACUTE CORONARY SYNDROME
     Route: 048
  3. PLACEBO [Suspect]
     Route: 048
  4. ASPIRIN [Suspect]
     Indication: ACUTE CORONARY SYNDROME
     Dosage: TEXT:325MG
     Route: 048
  5. ANTICOAGULANTS [Suspect]
     Indication: ACUTE CORONARY SYNDROME
     Dosage: TEXT:(2.5 MG OR 5.0 MG)
     Route: 048
     Dates: start: 20090310, end: 20090310
  6. CLOPIDOGREL [Suspect]
     Indication: ACUTE CORONARY SYNDROME
     Dosage: TEXT:75 MG
     Route: 048
  7. ETODOLAC [Concomitant]
     Indication: DRUG USE FOR UNKNOWN INDICATION
  8. METOPROLOL TARTRATE [Concomitant]
     Indication: DRUG USE FOR UNKNOWN INDICATION
  9. TESTOSTERONE [Concomitant]
     Indication: DRUG USE FOR UNKNOWN INDICATION
  10. HYDROCHLOROTHIAZIDE [Concomitant]
     Indication: DRUG USE FOR UNKNOWN INDICATION
  11. SIMVASTATIN [Concomitant]
     Indication: DRUG USE FOR UNKNOWN INDICATION
  12. LISINOPRIL [Concomitant]
     Indication: DRUG USE FOR UNKNOWN INDICATION

REACTIONS (1)
  - HAEMATOMA [None]
